FAERS Safety Report 6041164-6 (Version None)
Quarter: 2009Q1

REPORT INFORMATION
  Report Type: 
  Country: None (occurrence: None)
  Receive Date: 20090116
  Receipt Date: 20080918
  Transmission Date: 20090719
  Serious: No
  Sender: FDA-Public Use
  Company Number: US-BRISTOL-MYERS SQUIBB COMPANY-14329825

PATIENT
  Age: 91 Year
  Sex: Male
  Weight: 69 kg

DRUGS (17)
  1. ABILIFY [Suspect]
     Indication: ANXIETY
     Dosage: DOSE REDUCED TO 1MG DAILY.
     Dates: start: 20080822
  2. ABILIFY [Suspect]
     Indication: ANGER
     Dosage: DOSE REDUCED TO 1MG DAILY.
     Dates: start: 20080822
  3. COUMADIN [Concomitant]
  4. ACCUPRIL [Concomitant]
  5. PRAVACHOL [Concomitant]
  6. XALATAN [Concomitant]
     Dosage: EYE DROPS
  7. MIRALAX [Concomitant]
  8. FOLATE [Concomitant]
  9. FAMOTIDINE [Concomitant]
  10. VITAMIN B6 [Concomitant]
  11. OCUVITE LUTEIN [Concomitant]
  12. COLACE [Concomitant]
  13. CLARITIN [Concomitant]
  14. NAMENDA [Concomitant]
  15. SEROQUEL [Concomitant]
  16. EXELON [Concomitant]
  17. CALTRATE + D [Concomitant]

REACTIONS (2)
  - DELUSION [None]
  - PSYCHOSEXUAL DISORDER [None]
